FAERS Safety Report 5927995-9 (Version None)
Quarter: 2008Q4

REPORT INFORMATION
  Report Type: 
  Country: None (occurrence: None)
  Receive Date: 20081022
  Receipt Date: 20081022
  Transmission Date: 20090506
  Serious: Yes (Hospitalization)
  Sender: FDA-Public Use
  Company Number: None

PATIENT
  Sex: Female
  Weight: 55.34 kg

DRUGS (2)
  1. CARBOPLATIN [Suspect]
     Dosage: 709 MG
     Dates: end: 20081008
  2. TAXOL [Suspect]
     Dosage: 315 MG
     Dates: end: 20081008

REACTIONS (9)
  - ANAEMIA [None]
  - BACTERIA STOOL IDENTIFIED [None]
  - BODY TEMPERATURE INCREASED [None]
  - ENTEROCUTANEOUS FISTULA [None]
  - GASTROINTESTINAL ANASTOMOTIC LEAK [None]
  - MALNUTRITION [None]
  - NAUSEA [None]
  - PANCYTOPENIA [None]
  - VOMITING [None]
